FAERS Safety Report 9466890 (Version 1)
Quarter: 2013Q3

REPORT INFORMATION
  Report Type: Spontaneous
  Country: US (occurrence: US)
  Receive Date: 20130820
  Receipt Date: 20130820
  Transmission Date: 20140515
  Serious: Yes (Hospitalization)
  Sender: FDA-Public Use
  Company Number: US-UCBSA-095288

PATIENT
  Age: 16 Year
  Sex: Male

DRUGS (2)
  1. CIMZIA [Suspect]
     Indication: CROHN^S DISEASE
     Dosage: FREQUENCY: INDUCTION PHASE
     Route: 058
     Dates: start: 201307
  2. UCERIS [Concomitant]
     Indication: CROHN^S DISEASE
     Dosage: UNKNOWN DOSE
     Route: 048
     Dates: start: 201307

REACTIONS (7)
  - Stoma site haemorrhage [Not Recovered/Not Resolved]
  - Rectal haemorrhage [Not Recovered/Not Resolved]
  - Anaemia [Not Recovered/Not Resolved]
  - Headache [Recovered/Resolved]
  - Hypoaesthesia [Recovered/Resolved]
  - Swelling face [Not Recovered/Not Resolved]
  - Mouth ulceration [Not Recovered/Not Resolved]
